FAERS Safety Report 9675274 (Version 2)
Quarter: 2014Q1

REPORT INFORMATION
  Report Type: Spontaneous
  Country: FR (occurrence: None)
  Receive Date: 20131105
  Receipt Date: 20140122
  Transmission Date: 20141002
  Serious: Yes (Death, Life-Threatening, Hospitalization)
  Sender: FDA-Public Use
  Company Number: 2013000295

PATIENT
  Age: 56 Year
  Sex: Male

DRUGS (5)
  1. ACEON (PERINDOPRIL ERBUMINE) TABLET, 2MG [Suspect]
     Indication: HYPERTENSION
     Route: 048
     Dates: end: 20131009
  2. JANUMET [Suspect]
     Indication: TYPE 2 DIABETES MELLITUS
     Route: 048
     Dates: end: 20131009
  3. SOTALOL HYDROCHLORIDE (SOTALOL HYDROCHLORIDE) [Concomitant]
  4. PRAVADUAL (ACETYLSALICYLIC ACID, PRAVASTATIN SODIUM) [Concomitant]
  5. DIAMICRON (GLICLAZIDE) [Concomitant]

REACTIONS (14)
  - Renal failure [None]
  - Diarrhoea [None]
  - Asthenia [None]
  - Pyrexia [None]
  - Weight decreased [None]
  - Septic shock [None]
  - Oliguria [None]
  - Confusional state [None]
  - Lactic acidosis [None]
  - Blood pressure decreased [None]
  - Haemodynamic instability [None]
  - Ventricular fibrillation [None]
  - Cardio-respiratory arrest [None]
  - General physical health deterioration [None]
